FAERS Safety Report 4507263-2 (Version None)
Quarter: 2004Q4

REPORT INFORMATION
  Report Type: 
  Country: None (occurrence: None)
  Receive Date: 20041119
  Receipt Date: 20041103
  Transmission Date: 20050328
  Serious: Yes (Death)
  Sender: FDA-Public Use
  Company Number: 2004S1003282

PATIENT
  Age: 83 Year
  Sex: Female

DRUGS (9)
  1. CLOZAPINE [Suspect]
     Indication: SCHIZOPHRENIA
     Dosage: 12.5 MG TID, ORAL
     Route: 048
     Dates: start: 20040902, end: 20040920
  2. MORPHINE [Concomitant]
  3. ATROPINE OPHTHALMIC [Concomitant]
  4. FENTANYL [Concomitant]
  5. LEVOTHYROXINE SODIUM [Concomitant]
  6. MULTI-VITAMINS [Concomitant]
  7. ATENOLOL [Concomitant]
  8. MIRTAZAPINE [Concomitant]
  9. DONEPEZIL HCL [Concomitant]

REACTIONS (1)
  - AREFLEXIA [None]
